FAERS Safety Report 4337251-0 (Version None)
Quarter: 2004Q2

REPORT INFORMATION
  Report Type: 
  Country: None (occurrence: None)
  Receive Date: 20040413
  Receipt Date: 20040324
  Transmission Date: 20050107
  Serious: Yes (Death)
  Sender: FDA-Public Use
  Company Number: PHBS2004JP04093

PATIENT
  Age: 45 Year
  Sex: Female

DRUGS (3)
  1. NEORAL [Suspect]
     Indication: DERMATOMYOSITIS
     Dosage: 100 MG/D
     Route: 065
     Dates: start: 20020701
  2. PREDNISOLONE [Suspect]
     Indication: DERMATOMYOSITIS
     Dosage: 45 MG/D
     Route: 065
     Dates: start: 20020701
  3. DOCETAXEL [Suspect]
     Indication: OVARIAN CANCER
     Dosage: 70 MG/M2 ONCE EVERY 3-4 WEEKS
     Dates: start: 20020601

REACTIONS (6)
  - HERPES ZOSTER [None]
  - OPPORTUNISTIC INFECTION [None]
  - PNEUMONIA [None]
  - RESPIRATORY FAILURE [None]
  - SEPSIS [None]
  - WHITE BLOOD CELL COUNT DECREASED [None]
